FAERS Safety Report 7704742-1 (Version None)
Quarter: 2011Q3

REPORT INFORMATION
  Report Type: 
  Country: None (occurrence: None)
  Receive Date: 20110823
  Receipt Date: 20110815
  Transmission Date: 20111222
  Serious: Yes (Other)
  Sender: FDA-Public Use
  Company Number: PHHY2011KR74253

PATIENT
  Age: 73 Year
  Sex: Female

DRUGS (3)
  1. CALCIUM CARBONATE [Concomitant]
     Dosage: UNK
     Dates: start: 20030101
  2. ALENDRONATE SODIUM [Suspect]
     Dosage: 70 MG, PER WEEK
     Dates: start: 20030101
  3. CALCIUM WITH VITAMIN D [Concomitant]

REACTIONS (2)
  - FEMUR FRACTURE [None]
  - SCAPULA FRACTURE [None]
